FAERS Safety Report 5632902-2 (Version None)
Quarter: 2008Q1

REPORT INFORMATION
  Report Type: 
  Country: None (occurrence: None)
  Receive Date: 20080214
  Receipt Date: 20080201
  Transmission Date: 20080703
  Serious: Yes (Other)
  Sender: FDA-Public Use
  Company Number: 2008000278

PATIENT
  Age: 30 Year
  Sex: Female
  Weight: 48 kg

DRUGS (1)
  1. MINOXIDIL [Suspect]
     Dosage: 2% UNSPECIFIED,TOPICAL
     Route: 061

REACTIONS (1)
  - HYPERTRICHOSIS [None]
